FAERS Safety Report 22377932 (Version 1)
Quarter: 2023Q2

REPORT INFORMATION
  Report Type: Spontaneous
  Country: US (occurrence: US)
  Receive Date: 20230529
  Receipt Date: 20230529
  Transmission Date: 20230722
  Serious: Yes (Other)
  Sender: FDA-Public Use
  Company Number: US-STRIDES ARCOLAB LIMITED-2023SP007850

PATIENT
  Sex: Female

DRUGS (15)
  1. GABAPENTIN [Suspect]
     Active Substance: GABAPENTIN
     Indication: Back pain
     Dosage: 600 MILLIGRAM, EVERY MORNING
     Route: 065
     Dates: start: 2010
  2. GABAPENTIN [Suspect]
     Active Substance: GABAPENTIN
     Dosage: 1200 MILLIGRAM, AT BED TIME
     Route: 065
     Dates: start: 2010
  3. BUPRENORPHINE [Suspect]
     Active Substance: BUPRENORPHINE
     Indication: Back pain
     Dosage: 8 MILLIGRAM (2-2.5 PILLS A DAY)
     Route: 065
  4. HYDROCODONE [Suspect]
     Active Substance: HYDROCODONE
     Indication: Back pain
     Dosage: 10 MILLIGRAM, QID
     Route: 065
     Dates: start: 2002, end: 2016
  5. BUPROPION [Concomitant]
     Active Substance: BUPROPION
     Indication: Major depression
     Dosage: 3 TIMES A DAY
     Route: 065
     Dates: start: 2008, end: 202010
  6. BUPROPION [Concomitant]
     Active Substance: BUPROPION
     Indication: Nicotine dependence
     Dosage: 450 MILLIGRAM PER DAY
     Route: 065
     Dates: start: 202010
  7. BUPROPION [Concomitant]
     Active Substance: BUPROPION
     Indication: Parasomnia
  8. DULOXETINE [Concomitant]
     Active Substance: DULOXETINE
     Indication: Major depression
     Dosage: UNK
     Route: 065
     Dates: start: 2008, end: 202010
  9. DULOXETINE [Concomitant]
     Active Substance: DULOXETINE
     Indication: Nicotine dependence
  10. DULOXETINE [Concomitant]
     Active Substance: DULOXETINE
     Indication: Parasomnia
  11. HYDROXYZINE [Concomitant]
     Active Substance: HYDROXYZINE HYDROCHLORIDE
     Indication: Insomnia
     Dosage: UNK
     Route: 065
  12. TOPIRAMATE [Concomitant]
     Active Substance: TOPIRAMATE
     Indication: Nicotine dependence
     Dosage: UNK
     Route: 065
  13. TOPIRAMATE [Concomitant]
     Active Substance: TOPIRAMATE
     Indication: Parasomnia
  14. TRAZODONE [Concomitant]
     Active Substance: TRAZODONE HYDROCHLORIDE
     Indication: Insomnia
     Dosage: UNK
     Route: 065
  15. FLUOXETINE [Concomitant]
     Active Substance: FLUOXETINE HYDROCHLORIDE
     Indication: Major depression
     Dosage: UNK
     Route: 065
     Dates: start: 1992, end: 2008

REACTIONS (3)
  - Restless legs syndrome [Unknown]
  - Symptom masked [Unknown]
  - Off label use [Unknown]
